FAERS Safety Report 4761406-4 (Version None)
Quarter: 2005Q3

REPORT INFORMATION
  Report Type: 
  Country: None (occurrence: None)
  Receive Date: 20050906
  Receipt Date: 20050825
  Transmission Date: 20060218
  Serious: Yes (Death, Life-Threatening, Hospitalization, Other)
  Sender: FDA-Public Use
  Company Number: US-AMGEN-US147910

PATIENT
  Sex: Male

DRUGS (6)
  1. SENSIPAR [Suspect]
     Indication: HYPERPARATHYROIDISM SECONDARY
     Route: 048
     Dates: start: 20050217, end: 20050824
  2. CLONIDINE [Concomitant]
  3. LABETALOL [Concomitant]
  4. RENAGEL [Concomitant]
  5. CALCIUM CARBONATE [Concomitant]
  6. ZEMPLAR [Concomitant]

REACTIONS (8)
  - ATRIOVENTRICULAR BLOCK FIRST DEGREE [None]
  - CARDIAC ARREST [None]
  - CARDIOMYOPATHY [None]
  - DILATATION ATRIAL [None]
  - ELECTROCARDIOGRAM ST-T SEGMENT ABNORMAL [None]
  - PARATHYROID TUMOUR BENIGN [None]
  - TORSADE DE POINTES [None]
  - VENTRICULAR FIBRILLATION [None]
